FAERS Safety Report 6015871-5 (Version None)
Quarter: 2008Q4

REPORT INFORMATION
  Report Type: 
  Country: None (occurrence: None)
  Receive Date: 20081222
  Receipt Date: 20081219
  Transmission Date: 20090506
  Serious: Yes (Death, Hospitalization)
  Sender: FDA-Public Use
  Company Number: A0761185A

PATIENT
  Age: 62 Year
  Sex: Female
  Weight: 102.3 kg

DRUGS (13)
  1. AVANDIA [Suspect]
     Dosage: 4MG TWICE PER DAY
     Route: 048
     Dates: start: 20020101, end: 20060921
  2. METFORMIN HCL [Concomitant]
  3. INSULIN [Concomitant]
  4. PREDNISONE [Concomitant]
  5. SEROQUEL [Concomitant]
  6. ZYPREXA [Concomitant]
  7. LEXAPRO [Concomitant]
  8. ZOCOR [Concomitant]
  9. LIPITOR [Concomitant]
  10. SINGULAIR [Concomitant]
  11. ADVAIR DISKUS 250/50 [Concomitant]
  12. THEOPHYLLINE [Concomitant]
  13. SPIRIVA [Concomitant]

REACTIONS (2)
  - CARDIAC FAILURE CONGESTIVE [None]
  - MYOCARDIAL INFARCTION [None]
